FAERS Safety Report 6031930-5 (Version None)
Quarter: 2009Q1

REPORT INFORMATION
  Report Type: 
  Country: None (occurrence: None)
  Receive Date: 20090108
  Receipt Date: 20090106
  Transmission Date: 20090719
  Serious: Yes (Other)
  Sender: FDA-Public Use
  Company Number: US-ELI_LILLY_AND_COMPANY-US200812002662

PATIENT
  Age: 75 Year
  Sex: Female
  Weight: 75.283 kg

DRUGS (4)
  1. ALIMTA [Suspect]
     Dosage: OTHER; EVERY 3 WEEKS
     Dates: start: 20080807
  2. VITAMIN B-12 [Concomitant]
     Dosage: 1000 UG, UNK
     Route: 030
     Dates: start: 20080731
  3. FOLIC ACID [Concomitant]
     Dosage: 1 MG, UNK
     Route: 048
     Dates: start: 20080101
  4. CORTICOSTEROID NOS [Concomitant]
     Dosage: 8 MG, BID WITH CHEMO
     Dates: start: 20080731

REACTIONS (1)
  - INGROWN HAIR [None]
